FAERS Safety Report 26072871 (Version 1)
Quarter: 2025Q4

REPORT INFORMATION
  Report Type: Spontaneous
  Country: EU (occurrence: EU)
  Receive Date: 20251121
  Receipt Date: 20251121
  Transmission Date: 20260118
  Serious: Yes (Disabling)
  Sender: SANOFI AVENTIS
  Company Number: None

PATIENT
  Age: 54 Year
  Sex: Male
  Weight: 82 kg

DRUGS (3)
  1. AUBAGIO [Suspect]
     Active Substance: TERIFLUNOMIDE
     Indication: Relapsing-remitting multiple sclerosis
     Dosage: 14 MG, QD
     Route: 048
     Dates: start: 20170101, end: 20251009
  2. GABAPENTIN [Concomitant]
     Active Substance: GABAPENTIN
     Indication: Relapsing-remitting multiple sclerosis
     Dosage: 400 MG, QD
     Route: 048
  3. MODAFINIL [Concomitant]
     Active Substance: MODAFINIL
     Indication: Product used for unknown indication
     Dosage: 100 MG, QD
     Route: 048

REACTIONS (1)
  - Peripheral sensorimotor neuropathy [Not Recovered/Not Resolved]

NARRATIVE: CASE EVENT DATE: 20220901
